FAERS Safety Report 17004877 (Version 5)
Quarter: 2021Q1

REPORT INFORMATION
  Report Type: Spontaneous
  Country: JP (occurrence: JP)
  Receive Date: 20191107
  Receipt Date: 20210331
  Transmission Date: 20210419
  Serious: Yes (Other)
  Sender: FDA-Public Use
  Company Number: JP-BRISTOL-MYERS SQUIBB COMPANY-BMS-2019-077894

PATIENT
  Age: 80 Year
  Sex: Male

DRUGS (3)
  1. YERVOY [Suspect]
     Active Substance: IPILIMUMAB
     Indication: METASTATIC RENAL CELL CARCINOMA
     Dosage: UNK
     Route: 041
     Dates: start: 20190719, end: 20190920
  2. OPDIVO [Suspect]
     Active Substance: NIVOLUMAB
     Indication: METASTATIC RENAL CELL CARCINOMA
     Dosage: UNK
     Route: 041
     Dates: start: 20190719, end: 20190920
  3. OPDIVO [Suspect]
     Active Substance: NIVOLUMAB
     Dosage: MONOTHERAPY
     Route: 041

REACTIONS (5)
  - Thyroiditis [Unknown]
  - Type 1 diabetes mellitus [Unknown]
  - Hypopituitarism [Unknown]
  - Rash [Unknown]
  - Hypothyroidism [Unknown]

NARRATIVE: CASE EVENT DATE: 20190726
